FAERS Safety Report 8358788-3 (Version None)
Quarter: 2012Q2

REPORT INFORMATION
  Report Type: 
  Country: None (occurrence: None)
  Receive Date: 20120514
  Receipt Date: 20120502
  Transmission Date: 20120825
  Serious: No
  Sender: FDA-Public Use
  Company Number: US-ELI_LILLY_AND_COMPANY-US201106004620

PATIENT
  Sex: Female
  Weight: 83 kg

DRUGS (11)
  1. CYMBALTA [Concomitant]
     Dosage: 60 MG, UNK
  2. SYNTHROID [Concomitant]
     Dosage: 112 MG, UNK
  3. VESICARE [Concomitant]
     Dosage: 5 MG, UNK
  4. VITAMIN D [Concomitant]
     Dosage: 2000 U, UNK
  5. FORTEO [Suspect]
     Indication: OSTEOPOROSIS
     Dosage: 20 UG, QD
     Route: 058
     Dates: start: 20110420
  6. FORTEO [Suspect]
     Dosage: 20 UG, QD
     Route: 058
  7. VYTORIN [Concomitant]
     Dosage: 10 MG, UNK
  8. IMITREX [Concomitant]
     Dosage: 100 MG, PRN
  9. VITAMIN B-12 [Concomitant]
     Dosage: 1000 MG, UNK
  10. DEXLANSOPRAZOLE [Concomitant]
     Dosage: 60 MG, UNK
  11. AMITIZA [Concomitant]
     Dosage: 24 MG, UNK

REACTIONS (4)
  - FOOT DEFORMITY [None]
  - PLANTAR FASCIITIS [None]
  - INJECTION SITE HAEMATOMA [None]
  - PAIN IN EXTREMITY [None]
